FAERS Safety Report 6992596-0 (Version None)
Quarter: 2010Q3

REPORT INFORMATION
  Report Type: 
  Country: None (occurrence: None)
  Receive Date: 20100917
  Receipt Date: 20100907
  Transmission Date: 20110219
  Serious: Yes (Other)
  Sender: FDA-Public Use
  Company Number: US-ROCHE-726809

PATIENT
  Sex: Female

DRUGS (1)
  1. AVASTIN [Suspect]
     Route: 065
     Dates: start: 20090706

REACTIONS (7)
  - CEREBRAL HAEMORRHAGE [None]
  - EPISTAXIS [None]
  - FALL [None]
  - GAIT DISTURBANCE [None]
  - METASTASES TO CENTRAL NERVOUS SYSTEM [None]
  - SUBDURAL HAEMATOMA [None]
  - SYNCOPE [None]
